FAERS Safety Report 11075536 (Version 4)
Quarter: 2015Q3

REPORT INFORMATION
  Report Type: Report from Study
  Country: US (occurrence: US)
  Receive Date: 20150429
  Receipt Date: 20150922
  Transmission Date: 20151125
  Serious: Yes (Other)
  Sender: FDA-Public Use
  Company Number: US-SA-2015SA055109

PATIENT
  Age: 51 Year
  Sex: Female

DRUGS (1)
  1. AUBAGIO [Suspect]
     Active Substance: TERIFLUNOMIDE
     Indication: MULTIPLE SCLEROSIS
     Route: 048
     Dates: start: 20150401

REACTIONS (15)
  - Wheelchair user [Unknown]
  - Feeling abnormal [Unknown]
  - Sleep disorder [Unknown]
  - Muscular weakness [Unknown]
  - Migraine [Unknown]
  - Gait disturbance [Unknown]
  - Liver function test abnormal [Recovering/Resolving]
  - Sensory loss [Unknown]
  - Neuralgia [Unknown]
  - Walking aid user [Unknown]
  - Feeling cold [Unknown]
  - Back pain [Unknown]
  - Eye disorder [Unknown]
  - Insomnia [Unknown]
  - Alopecia [Unknown]

NARRATIVE: CASE EVENT DATE: 2015
